FAERS Safety Report 6864743-2 (Version None)
Quarter: 2010Q3

REPORT INFORMATION
  Report Type: 
  Country: None (occurrence: None)
  Receive Date: 20100721
  Receipt Date: 20080328
  Transmission Date: 20110219
  Serious: No
  Sender: FDA-Public Use
  Company Number: US-PFIZER INC-2008030015

PATIENT
  Sex: Female
  Weight: 90.7 kg

DRUGS (11)
  1. CHANTIX [Suspect]
     Indication: SMOKING CESSATION THERAPY
     Dates: start: 20080101
  2. FENTANYL [Suspect]
     Indication: PAIN
  3. SOMA [Concomitant]
  4. ACTOS [Concomitant]
  5. GLIPIZIDE [Concomitant]
  6. CYMBALTA [Concomitant]
  7. WELLBUTRIN [Concomitant]
  8. VESICARE [Concomitant]
     Indication: SLEEP DISORDER
  9. ATENOLOL [Concomitant]
  10. VYTORIN [Concomitant]
  11. REGLAN [Concomitant]

REACTIONS (6)
  - DRUG DEPENDENCE [None]
  - FATIGUE [None]
  - FEELING JITTERY [None]
  - INSOMNIA [None]
  - JOINT DISLOCATION [None]
  - MUSCLE TWITCHING [None]
